FAERS Safety Report 25464440 (Version 1)
Quarter: 2025Q2

REPORT INFORMATION
  Report Type: Spontaneous
  Country: CA (occurrence: CA)
  Receive Date: 20250621
  Receipt Date: 20250621
  Transmission Date: 20250717
  Serious: Yes (Death, Life-Threatening, Hospitalization, Disabling, Congenital Anomaly, Other)
  Sender: PHARMAXIS
  Company Number: None

PATIENT
  Age: 80 Year
  Sex: Male
  Weight: 69 kg

DRUGS (295)
  1. ACETAMINOPHEN [Suspect]
     Active Substance: ACETAMINOPHEN
     Indication: Product used for unknown indication
     Route: 065
  2. ACETAMINOPHEN [Suspect]
     Active Substance: ACETAMINOPHEN
     Indication: Product used for unknown indication
     Route: 065
  3. ALBUTEROL SULFATE [Suspect]
     Active Substance: ALBUTEROL SULFATE
     Indication: Asthma
     Route: 065
  4. ALLANTOIN [Suspect]
     Active Substance: ALLANTOIN
     Indication: Product used for unknown indication
     Route: 065
  5. ALLANTOIN [Suspect]
     Active Substance: ALLANTOIN
     Indication: Product used for unknown indication
     Route: 065
  6. ALLOPURINOL [Suspect]
     Active Substance: ALLOPURINOL
     Indication: Product used for unknown indication
     Route: 065
  7. ALOE VERA LEAF [Suspect]
     Active Substance: ALOE VERA LEAF
     Indication: Product used for unknown indication
     Route: 065
  8. AMLODIPINE BESYLATE [Suspect]
     Active Substance: AMLODIPINE BESYLATE
     Indication: Product used for unknown indication
     Route: 065
  9. AMMONIUM CHLORIDE [Suspect]
     Active Substance: AMMONIUM CHLORIDE
     Indication: Product used for unknown indication
     Route: 065
  10. ARANESP [Suspect]
     Active Substance: DARBEPOETIN ALFA
     Indication: Product used for unknown indication
     Route: 065
  11. VITAMIN C [Suspect]
     Active Substance: ASCORBIC ACID
     Indication: Product used for unknown indication
     Route: 065
  12. ATROVENT [Suspect]
     Active Substance: IPRATROPIUM BROMIDE
     Indication: Product used for unknown indication
     Route: 065
  13. BETA CAROTENE [Suspect]
     Active Substance: BETA CAROTENE
     Indication: Product used for unknown indication
     Route: 065
  14. BETAMETHASONE DIPROPIONATE [Suspect]
     Active Substance: BETAMETHASONE DIPROPIONATE
     Indication: Product used for unknown indication
     Route: 065
  15. BETAMETHASONE DIPROPIONATE [Suspect]
     Active Substance: BETAMETHASONE DIPROPIONATE
     Indication: Product used for unknown indication
     Route: 065
  16. BIOTIN [Suspect]
     Active Substance: BIOTIN
     Indication: Product used for unknown indication
     Route: 065
  17. BIOTIN [Suspect]
     Active Substance: BIOTIN
     Indication: Product used for unknown indication
     Route: 065
  18. BISACODYL [Suspect]
     Active Substance: BISACODYL
     Indication: Product used for unknown indication
     Route: 065
  19. BISMUTH SUBNITRATE [Suspect]
     Active Substance: BISMUTH SUBNITRATE
     Indication: Product used for unknown indication
     Route: 065
  20. BUDESONIDE [Suspect]
     Active Substance: BUDESONIDE
     Indication: Product used for unknown indication
     Route: 065
  21. BUDESONIDE [Suspect]
     Active Substance: BUDESONIDE
     Indication: Product used for unknown indication
     Route: 065
  22. CALCITRIOL [Suspect]
     Active Substance: CALCITRIOL
     Indication: Product used for unknown indication
     Route: 065
  23. CALCITRIOL [Suspect]
     Active Substance: CALCITRIOL
     Indication: Product used for unknown indication
     Route: 065
  24. CALCIUM [Suspect]
     Active Substance: CALCIUM
     Indication: Product used for unknown indication
     Route: 065
  25. CALCIUM [Suspect]
     Active Substance: CALCIUM
     Indication: Product used for unknown indication
     Route: 065
  26. CALCIUM [Suspect]
     Active Substance: CALCIUM
     Indication: Intentional product misuse
     Route: 065
  27. CALCIUM [Suspect]
     Active Substance: CALCIUM
     Indication: Intentional product misuse
     Route: 065
  28. CALCIUM CARBONATE\CHOLECALCIFEROL [Suspect]
     Active Substance: CALCIUM CARBONATE\CHOLECALCIFEROL
     Indication: Product used for unknown indication
     Route: 065
  29. HERBALS [Suspect]
     Active Substance: HERBALS
     Indication: Product used for unknown indication
     Route: 065
  30. CANDESARTAN [Suspect]
     Active Substance: CANDESARTAN
     Indication: Product used for unknown indication
     Route: 065
  31. SAFFLOWER [Suspect]
     Active Substance: SAFFLOWER
     Indication: Product used for unknown indication
     Route: 065
  32. CHLORAMPHENICOL [Suspect]
     Active Substance: CHLORAMPHENICOL
     Indication: Product used for unknown indication
     Route: 065
  33. CHLORPHENIRAMINE [Suspect]
     Active Substance: CHLORPHENIRAMINE
     Indication: Product used for unknown indication
     Route: 065
  34. CHOLECALCIFEROL [Suspect]
     Active Substance: CHOLECALCIFEROL
     Indication: Product used for unknown indication
     Route: 065
  35. CITRIC ACID [Suspect]
     Active Substance: CITRIC ACID MONOHYDRATE
     Indication: Product used for unknown indication
     Route: 065
  36. DEXILANT [Suspect]
     Active Substance: DEXLANSOPRAZOLE
     Indication: Product used for unknown indication
     Route: 065
  37. DEXTROSE [Suspect]
     Active Substance: DEXTROSE MONOHYDRATE
     Indication: Product used for unknown indication
     Route: 065
  38. DIPROSONE [Suspect]
     Active Substance: BETAMETHASONE DIPROPIONATE
     Indication: Product used for unknown indication
     Route: 065
  39. DIPYRONE [Suspect]
     Active Substance: DIPYRONE
     Indication: Product used for unknown indication
     Route: 065
  40. DOBUTAMINE [Suspect]
     Active Substance: DOBUTAMINE HYDROCHLORIDE
     Indication: Product used for unknown indication
     Route: 065
  41. DOBUTAMINE [Suspect]
     Active Substance: DOBUTAMINE HYDROCHLORIDE
     Indication: Product used for unknown indication
     Route: 065
  42. AMIODARONE HYDROCHLORIDE [Suspect]
     Active Substance: AMIODARONE HYDROCHLORIDE
     Indication: Product used for unknown indication
     Route: 065
  43. DOCONEXENT\ICOSAPENT [Suspect]
     Active Substance: DOCONEXENT\ICOSAPENT
     Indication: Product used for unknown indication
     Route: 065
  44. DOCUSATE SODIUM [Suspect]
     Active Substance: DOCUSATE SODIUM
     Indication: Product used for unknown indication
     Route: 065
  45. DOMPERIDONE [Suspect]
     Active Substance: DOMPERIDONE
     Indication: Product used for unknown indication
     Route: 065
  46. DULCOLAX (BISACODYL) [Suspect]
     Active Substance: BISACODYL
     Indication: Product used for unknown indication
     Route: 065
  47. FIASP [Suspect]
     Active Substance: INSULIN ASPART
     Indication: Product used for unknown indication
     Route: 065
  48. DIETARY SUPPLEMENT [Suspect]
     Active Substance: DIETARY SUPPLEMENT
     Indication: Product used for unknown indication
     Route: 065
  49. FLUTICASONE [Suspect]
     Active Substance: FLUTICASONE
     Indication: Product used for unknown indication
     Route: 065
  50. FLUTICASONE [Suspect]
     Active Substance: FLUTICASONE
     Indication: Product used for unknown indication
     Route: 065
  51. FLUTICASONE [Suspect]
     Active Substance: FLUTICASONE
     Indication: Product used for unknown indication
     Route: 065
  52. FOLIC ACID [Suspect]
     Active Substance: FOLIC ACID
     Indication: Product used for unknown indication
     Route: 065
  53. FOSRENOL [Suspect]
     Active Substance: LANTHANUM CARBONATE
     Indication: Product used for unknown indication
     Route: 065
  54. FRAGMIN [Suspect]
     Active Substance: DALTEPARIN SODIUM
     Indication: Product used for unknown indication
     Route: 065
  55. FURAZOLIDONE [Suspect]
     Active Substance: FURAZOLIDONE
     Indication: Product used for unknown indication
     Route: 065
  56. GABAPENTIN [Suspect]
     Active Substance: GABAPENTIN
     Indication: Product used for unknown indication
     Route: 065
  57. NITROGLYCERIN [Suspect]
     Active Substance: NITROGLYCERIN
     Indication: Product used for unknown indication
     Route: 065
  58. HERBALS\PAULLINIA CUPANA SEED [Suspect]
     Active Substance: HERBALS\PAULLINIA CUPANA SEED
     Indication: Product used for unknown indication
     Route: 065
  59. HEPARIN CALCIUM [Suspect]
     Active Substance: HEPARIN CALCIUM
     Indication: Product used for unknown indication
     Route: 065
  60. HEPARIN SODIUM [Suspect]
     Active Substance: HEPARIN SODIUM
     Indication: Product used for unknown indication
     Route: 065
  61. HEPARIN SODIUM [Suspect]
     Active Substance: HEPARIN SODIUM
     Indication: Product used for unknown indication
     Route: 065
  62. DEXTROSE\HEPARIN SODIUM [Suspect]
     Active Substance: DEXTROSE\HEPARIN SODIUM
     Indication: Product used for unknown indication
     Route: 065
  63. HORSE CHESTNUT [Suspect]
     Active Substance: HORSE CHESTNUT
     Indication: Product used for unknown indication
     Route: 065
  64. HYDROCORTISONE ACETATE [Suspect]
     Active Substance: HYDROCORTISONE ACETATE
     Indication: Product used for unknown indication
     Route: 065
  65. HYDROCORTISONE ACETATE [Suspect]
     Active Substance: HYDROCORTISONE ACETATE
     Indication: Product used for unknown indication
     Route: 065
  66. HYDROMORPHONE [Suspect]
     Active Substance: HYDROMORPHONE
     Indication: Product used for unknown indication
     Route: 065
  67. HYDROMORPHONE HYDROCHLORIDE [Suspect]
     Active Substance: HYDROMORPHONE HYDROCHLORIDE
     Indication: Product used for unknown indication
     Route: 065
  68. INFLUENZA VIRUS VACCINE [Suspect]
     Active Substance: INFLUENZA VIRUS VACCINE
     Indication: Product used for unknown indication
     Route: 065
  69. IPRATROPIUM [Suspect]
     Active Substance: IPRATROPIUM
     Indication: Sleep disorder therapy
     Route: 065
  70. IPRATROPIUM [Suspect]
     Active Substance: IPRATROPIUM
     Indication: Sleep disorder therapy
     Route: 065
  71. IPRATROPIUM [Suspect]
     Active Substance: IPRATROPIUM
     Indication: Sleep disorder therapy
  72. IPRATROPIUM [Suspect]
     Active Substance: IPRATROPIUM
     Indication: Sleep disorder therapy
  73. IPRATROPIUM [Suspect]
     Active Substance: IPRATROPIUM
     Indication: Sleep disorder therapy
     Route: 065
  74. IPRATROPIUM [Suspect]
     Active Substance: IPRATROPIUM
     Indication: Sleep disorder therapy
     Route: 050
  75. IPRATROPIUM [Suspect]
     Active Substance: IPRATROPIUM
     Indication: Sleep disorder therapy
     Route: 065
  76. IPRATROPIUM [Suspect]
     Active Substance: IPRATROPIUM
     Indication: Sleep disorder therapy
     Route: 065
  77. IPRATROPIUM [Suspect]
     Active Substance: IPRATROPIUM
     Indication: Sleep disorder therapy
  78. IPRATROPIUM [Suspect]
     Active Substance: IPRATROPIUM
     Indication: Sleep disorder therapy
  79. IPRATROPIUM [Suspect]
     Active Substance: IPRATROPIUM
     Indication: Off label use
     Route: 065
  80. IPRATROPIUM [Suspect]
     Active Substance: IPRATROPIUM
     Indication: Off label use
     Route: 065
  81. IPRATROPIUM [Suspect]
     Active Substance: IPRATROPIUM
     Indication: Off label use
  82. IPRATROPIUM [Suspect]
     Active Substance: IPRATROPIUM
     Indication: Off label use
  83. IPRATROPIUM [Suspect]
     Active Substance: IPRATROPIUM
     Indication: Off label use
     Route: 065
  84. IPRATROPIUM [Suspect]
     Active Substance: IPRATROPIUM
     Indication: Off label use
     Route: 050
  85. IPRATROPIUM [Suspect]
     Active Substance: IPRATROPIUM
     Indication: Off label use
     Route: 065
  86. IPRATROPIUM [Suspect]
     Active Substance: IPRATROPIUM
     Indication: Off label use
     Route: 065
  87. IPRATROPIUM [Suspect]
     Active Substance: IPRATROPIUM
     Indication: Off label use
  88. IPRATROPIUM [Suspect]
     Active Substance: IPRATROPIUM
     Indication: Off label use
  89. IPRATROPIUM [Suspect]
     Active Substance: IPRATROPIUM
     Indication: Intentional product misuse
     Route: 065
  90. IPRATROPIUM [Suspect]
     Active Substance: IPRATROPIUM
     Indication: Intentional product misuse
     Route: 065
  91. IPRATROPIUM [Suspect]
     Active Substance: IPRATROPIUM
     Indication: Intentional product misuse
  92. IPRATROPIUM [Suspect]
     Active Substance: IPRATROPIUM
     Indication: Intentional product misuse
  93. IPRATROPIUM [Suspect]
     Active Substance: IPRATROPIUM
     Indication: Intentional product misuse
     Route: 065
  94. IPRATROPIUM [Suspect]
     Active Substance: IPRATROPIUM
     Indication: Intentional product misuse
     Route: 050
  95. IPRATROPIUM [Suspect]
     Active Substance: IPRATROPIUM
     Indication: Intentional product misuse
     Route: 065
  96. IPRATROPIUM [Suspect]
     Active Substance: IPRATROPIUM
     Indication: Intentional product misuse
     Route: 065
  97. IPRATROPIUM [Suspect]
     Active Substance: IPRATROPIUM
     Indication: Intentional product misuse
  98. IPRATROPIUM [Suspect]
     Active Substance: IPRATROPIUM
     Indication: Intentional product misuse
  99. IPRATROPIUM [Suspect]
     Active Substance: IPRATROPIUM
     Indication: Dyspnoea
     Route: 065
  100. IPRATROPIUM [Suspect]
     Active Substance: IPRATROPIUM
     Indication: Dyspnoea
     Route: 065
  101. IPRATROPIUM [Suspect]
     Active Substance: IPRATROPIUM
     Indication: Dyspnoea
  102. IPRATROPIUM [Suspect]
     Active Substance: IPRATROPIUM
     Indication: Dyspnoea
  103. IPRATROPIUM [Suspect]
     Active Substance: IPRATROPIUM
     Indication: Dyspnoea
     Route: 065
  104. IPRATROPIUM [Suspect]
     Active Substance: IPRATROPIUM
     Indication: Dyspnoea
     Route: 050
  105. IPRATROPIUM [Suspect]
     Active Substance: IPRATROPIUM
     Indication: Dyspnoea
     Route: 065
  106. IPRATROPIUM [Suspect]
     Active Substance: IPRATROPIUM
     Indication: Dyspnoea
     Route: 065
  107. IPRATROPIUM [Suspect]
     Active Substance: IPRATROPIUM
     Indication: Dyspnoea
  108. IPRATROPIUM [Suspect]
     Active Substance: IPRATROPIUM
     Indication: Dyspnoea
  109. JUBLIA [Suspect]
     Active Substance: EFINACONAZOLE
     Indication: Product used for unknown indication
     Route: 061
  110. JUBLIA [Suspect]
     Active Substance: EFINACONAZOLE
     Indication: Product used for unknown indication
     Route: 061
  111. HYDROMORPHONE HYDROCHLORIDE [Suspect]
     Active Substance: HYDROMORPHONE HYDROCHLORIDE
     Indication: Product used for unknown indication
     Route: 065
  112. PANAX GINSENG WHOLE [Suspect]
     Active Substance: PANAX GINSENG WHOLE
     Indication: Product used for unknown indication
     Route: 065
  113. LEVOTHYROXINE [Suspect]
     Active Substance: LEVOTHYROXINE
     Indication: Product used for unknown indication
     Route: 065
  114. MAALOX ANTACID [Suspect]
     Active Substance: ALUMINUM HYDROXIDE\DIMETHICONE\MAGNESIUM HYDROXIDE
     Indication: Product used for unknown indication
     Route: 065
  115. POLYETHYLENE GLYCOL 3350 [Suspect]
     Active Substance: POLYETHYLENE GLYCOL 3350
     Indication: Product used for unknown indication
     Route: 065
  116. MAGNESIUM CARBONATE [Suspect]
     Active Substance: MAGNESIUM CARBONATE
     Indication: Product used for unknown indication
     Route: 065
  117. MALTOSE [Suspect]
     Active Substance: MALTOSE
     Indication: Product used for unknown indication
     Route: 065
  118. MALTOSE [Suspect]
     Active Substance: MALTOSE
     Indication: Product used for unknown indication
     Route: 065
  119. MELATONIN [Suspect]
     Active Substance: MELATONIN
     Indication: Product used for unknown indication
     Route: 065
  120. MESALAMINE [Suspect]
     Active Substance: MESALAMINE
     Indication: Product used for unknown indication
     Route: 065
  121. METAMIZOLE SODIUM [Suspect]
     Active Substance: METAMIZOLE SODIUM
     Indication: Product used for unknown indication
     Route: 065
  122. METAMIZOLE SODIUM [Suspect]
     Active Substance: METAMIZOLE SODIUM
     Indication: Product used for unknown indication
     Route: 065
  123. METRONIDAZOLE [Suspect]
     Active Substance: METRONIDAZOLE
     Indication: Off label use
     Route: 065
  124. METRONIDAZOLE [Suspect]
     Active Substance: METRONIDAZOLE
     Indication: Off label use
     Route: 065
  125. METRONIDAZOLE [Suspect]
     Active Substance: METRONIDAZOLE
     Indication: Intentional product misuse
     Route: 065
  126. METRONIDAZOLE [Suspect]
     Active Substance: METRONIDAZOLE
     Indication: Intentional product misuse
     Route: 065
  127. METRONIDAZOLE [Suspect]
     Active Substance: METRONIDAZOLE
     Indication: Bacterial infection
     Route: 065
  128. METRONIDAZOLE [Suspect]
     Active Substance: METRONIDAZOLE
     Indication: Bacterial infection
     Route: 065
  129. SODIUM PHOSPHATE, MONOBASIC [Suspect]
     Active Substance: SODIUM PHOSPHATE, MONOBASIC
     Indication: Product used for unknown indication
     Route: 065
  130. MONTELUKAST [Suspect]
     Active Substance: MONTELUKAST
     Indication: Product used for unknown indication
     Route: 065
  131. MORPHINE HYDROCHLORIDE [Suspect]
     Active Substance: MORPHINE HYDROCHLORIDE
     Indication: Product used for unknown indication
     Route: 065
  132. MORPHINE SULFATE [Suspect]
     Active Substance: MORPHINE SULFATE
     Indication: Product used for unknown indication
     Route: 065
  133. SODIUM CHLORIDE [Suspect]
     Active Substance: SODIUM CHLORIDE
     Indication: Product used for unknown indication
     Route: 065
  134. NASONEX [Suspect]
     Active Substance: MOMETASONE FUROATE
     Indication: Product used for unknown indication
     Route: 065
  135. NICOTINAMIDE [Suspect]
     Active Substance: NIACINAMIDE
     Indication: Product used for unknown indication
     Route: 065
  136. NITROGLYCERIN [Suspect]
     Active Substance: NITROGLYCERIN
     Indication: Product used for unknown indication
     Route: 065
  137. NOVORAPID [Suspect]
     Active Substance: INSULIN ASPART
     Indication: Product used for unknown indication
     Route: 065
  138. NUCALA [Suspect]
     Active Substance: MEPOLIZUMAB
     Indication: Product used for unknown indication
     Route: 065
  139. ONDANSETRON [Suspect]
     Active Substance: ONDANSETRON
     Indication: Product used for unknown indication
     Route: 065
  140. OSELTAMIVIR [Suspect]
     Active Substance: OSELTAMIVIR
     Indication: Product used for unknown indication
     Route: 065
  141. OSELTAMIVIR [Suspect]
     Active Substance: OSELTAMIVIR
     Indication: Product used for unknown indication
     Route: 065
  142. OTRIVIN [Suspect]
     Active Substance: XYLOMETAZOLINE
     Indication: Product used for unknown indication
     Route: 065
  143. PANTOPRAZOLE SODIUM [Suspect]
     Active Substance: PANTOPRAZOLE SODIUM
     Indication: Product used for unknown indication
     Route: 065
  144. PANTOPRAZOLE [Suspect]
     Active Substance: PANTOPRAZOLE
     Indication: Product used for unknown indication
     Route: 065
  145. HERBALS\PAULLINIA CUPANA SEED [Suspect]
     Active Substance: HERBALS\PAULLINIA CUPANA SEED
     Indication: Product used for unknown indication
     Route: 065
  146. HERBALS\PAULLINIA CUPANA SEED [Suspect]
     Active Substance: HERBALS\PAULLINIA CUPANA SEED
     Indication: Product used for unknown indication
     Route: 065
  147. PHYTONADIONE [Suspect]
     Active Substance: PHYTONADIONE
     Indication: Product used for unknown indication
     Route: 065
  148. PHYTONADIONE [Suspect]
     Active Substance: PHYTONADIONE
     Indication: Vitamin supplementation
     Route: 065
  149. PHYTONADIONE [Suspect]
     Active Substance: PHYTONADIONE
     Indication: Vitamin supplementation
     Route: 065
  150. PHYTONADIONE [Suspect]
     Active Substance: PHYTONADIONE
     Indication: Vitamin supplementation
     Route: 065
  151. PHYTONADIONE [Suspect]
     Active Substance: PHYTONADIONE
     Indication: Vitamin supplementation
     Route: 065
  152. PHYTONADIONE [Suspect]
     Active Substance: PHYTONADIONE
     Indication: Vitamin supplementation
     Route: 065
  153. PHYTONADIONE [Suspect]
     Active Substance: PHYTONADIONE
     Indication: Off label use
     Route: 065
  154. PHYTONADIONE [Suspect]
     Active Substance: PHYTONADIONE
     Indication: Off label use
     Route: 065
  155. PHYTONADIONE [Suspect]
     Active Substance: PHYTONADIONE
     Indication: Off label use
     Route: 065
  156. PHYTONADIONE [Suspect]
     Active Substance: PHYTONADIONE
     Indication: Off label use
     Route: 065
  157. PHYTONADIONE [Suspect]
     Active Substance: PHYTONADIONE
     Indication: Off label use
     Route: 065
  158. ANHYDROUS CITRIC ACID\MAGNESIUM OXIDE\SODIUM PICOSULFATE [Suspect]
     Active Substance: ANHYDROUS CITRIC ACID\MAGNESIUM OXIDE\SODIUM PICOSULFATE
     Indication: Product used for unknown indication
     Route: 065
  159. AZITHROMYCIN ANHYDROUS [Suspect]
     Active Substance: AZITHROMYCIN ANHYDROUS
     Indication: Product used for unknown indication
     Route: 065
  160. POLYETHYLENE GLYCOL [Suspect]
     Active Substance: POLYETHYLENE GLYCOL
     Indication: Product used for unknown indication
     Route: 065
  161. POLYETHYLENE GLYCOL [Suspect]
     Active Substance: POLYETHYLENE GLYCOL
     Indication: Product used for unknown indication
     Route: 065
  162. POTASSIUM [Suspect]
     Active Substance: POTASSIUM
     Indication: Product used for unknown indication
     Route: 065
  163. POTASSIUM PERCHLORATE [Suspect]
     Active Substance: POTASSIUM PERCHLORATE
     Indication: Product used for unknown indication
     Route: 065
  164. PRAMIPEXOLE [Suspect]
     Active Substance: PRAMIPEXOLE
     Indication: Product used for unknown indication
     Route: 065
  165. PREGABALIN [Suspect]
     Active Substance: PREGABALIN
     Indication: Product used for unknown indication
     Route: 065
  166. PREVACID [Suspect]
     Active Substance: LANSOPRAZOLE
     Indication: Product used for unknown indication
     Route: 065
  167. PREVNAR 13 [Suspect]
     Active Substance: STREPTOCOCCUS PNEUMONIAE TYPE 1 CAPSULAR POLYSACCHARIDE DIPHTHERIA CRM197 PROTEIN CONJUGATE ANTIGEN\
     Indication: Product used for unknown indication
     Route: 065
  168. PROPYLENE GLYCOL [Suspect]
     Active Substance: PROPYLENE GLYCOL
     Indication: Product used for unknown indication
     Route: 065
  169. PYRIDOXINE [Suspect]
     Active Substance: PYRIDOXINE
     Indication: Product used for unknown indication
     Route: 065
  170. PYRIDOXINE [Suspect]
     Active Substance: PYRIDOXINE
     Indication: Product used for unknown indication
     Route: 065
  171. QUETIAPINE [Suspect]
     Active Substance: QUETIAPINE
     Indication: Product used for unknown indication
     Route: 065
  172. RAMIPRIL [Suspect]
     Active Substance: RAMIPRIL
     Indication: Prophylaxis
     Route: 065
  173. RAMIPRIL [Suspect]
     Active Substance: RAMIPRIL
     Indication: Prophylaxis
     Route: 048
  174. RAMIPRIL [Suspect]
     Active Substance: RAMIPRIL
     Indication: Asthma
     Route: 065
  175. RAMIPRIL [Suspect]
     Active Substance: RAMIPRIL
     Indication: Asthma
     Route: 048
  176. RANITIDINE [Suspect]
     Active Substance: RANITIDINE
     Indication: Product used for unknown indication
     Route: 065
  177. RIBOFLAVIN [Suspect]
     Active Substance: RIBOFLAVIN
     Indication: Product used for unknown indication
     Route: 065
  178. RISEDRONATE SODIUM [Suspect]
     Active Substance: RISEDRONATE SODIUM
     Indication: Product used for unknown indication
     Route: 065
  179. ROSUVASTATIN [Suspect]
     Active Substance: ROSUVASTATIN
     Indication: Product used for unknown indication
     Route: 065
  180. ALBUTEROL [Suspect]
     Active Substance: ALBUTEROL
     Indication: Product used for unknown indication
     Route: 065
  181. ALBUTEROL SULFATE [Suspect]
     Active Substance: ALBUTEROL SULFATE
     Indication: Prophylaxis
     Route: 065
  182. ALBUTEROL SULFATE [Suspect]
     Active Substance: ALBUTEROL SULFATE
     Indication: Prophylaxis
     Route: 065
  183. ALBUTEROL SULFATE [Suspect]
     Active Substance: ALBUTEROL SULFATE
     Indication: Prophylaxis
     Route: 065
  184. ALBUTEROL SULFATE [Suspect]
     Active Substance: ALBUTEROL SULFATE
     Indication: Prophylaxis
     Route: 065
  185. ALBUTEROL SULFATE [Suspect]
     Active Substance: ALBUTEROL SULFATE
     Indication: Prophylaxis
     Route: 065
  186. ALBUTEROL SULFATE [Suspect]
     Active Substance: ALBUTEROL SULFATE
     Indication: Prophylaxis
     Route: 065
  187. ALBUTEROL SULFATE [Suspect]
     Active Substance: ALBUTEROL SULFATE
     Indication: Prophylaxis
     Route: 065
  188. ALBUTEROL SULFATE [Suspect]
     Active Substance: ALBUTEROL SULFATE
     Indication: Off label use
     Route: 065
  189. ALBUTEROL SULFATE [Suspect]
     Active Substance: ALBUTEROL SULFATE
     Indication: Off label use
     Route: 065
  190. ALBUTEROL SULFATE [Suspect]
     Active Substance: ALBUTEROL SULFATE
     Indication: Off label use
     Route: 065
  191. ALBUTEROL SULFATE [Suspect]
     Active Substance: ALBUTEROL SULFATE
     Indication: Off label use
     Route: 065
  192. ALBUTEROL SULFATE [Suspect]
     Active Substance: ALBUTEROL SULFATE
     Indication: Off label use
     Route: 065
  193. ALBUTEROL SULFATE [Suspect]
     Active Substance: ALBUTEROL SULFATE
     Indication: Off label use
     Route: 065
  194. ALBUTEROL SULFATE [Suspect]
     Active Substance: ALBUTEROL SULFATE
     Indication: Off label use
     Route: 065
  195. ALBUTEROL SULFATE [Suspect]
     Active Substance: ALBUTEROL SULFATE
     Indication: Intentional product misuse
     Route: 065
  196. ALBUTEROL SULFATE [Suspect]
     Active Substance: ALBUTEROL SULFATE
     Indication: Intentional product misuse
     Route: 065
  197. ALBUTEROL SULFATE [Suspect]
     Active Substance: ALBUTEROL SULFATE
     Indication: Intentional product misuse
     Route: 065
  198. ALBUTEROL SULFATE [Suspect]
     Active Substance: ALBUTEROL SULFATE
     Indication: Intentional product misuse
     Route: 065
  199. ALBUTEROL SULFATE [Suspect]
     Active Substance: ALBUTEROL SULFATE
     Indication: Intentional product misuse
     Route: 065
  200. ALBUTEROL SULFATE [Suspect]
     Active Substance: ALBUTEROL SULFATE
     Indication: Intentional product misuse
     Route: 065
  201. ALBUTEROL SULFATE [Suspect]
     Active Substance: ALBUTEROL SULFATE
     Indication: Intentional product misuse
     Route: 065
  202. ALBUTEROL SULFATE [Suspect]
     Active Substance: ALBUTEROL SULFATE
     Indication: Chronic obstructive pulmonary disease
     Route: 065
  203. ALBUTEROL SULFATE [Suspect]
     Active Substance: ALBUTEROL SULFATE
     Indication: Chronic obstructive pulmonary disease
     Route: 065
  204. ALBUTEROL SULFATE [Suspect]
     Active Substance: ALBUTEROL SULFATE
     Indication: Chronic obstructive pulmonary disease
     Route: 065
  205. ALBUTEROL SULFATE [Suspect]
     Active Substance: ALBUTEROL SULFATE
     Indication: Chronic obstructive pulmonary disease
     Route: 065
  206. ALBUTEROL SULFATE [Suspect]
     Active Substance: ALBUTEROL SULFATE
     Indication: Chronic obstructive pulmonary disease
     Route: 065
  207. ALBUTEROL SULFATE [Suspect]
     Active Substance: ALBUTEROL SULFATE
     Indication: Chronic obstructive pulmonary disease
     Route: 065
  208. ALBUTEROL SULFATE [Suspect]
     Active Substance: ALBUTEROL SULFATE
     Indication: Chronic obstructive pulmonary disease
     Route: 065
  209. ALBUTEROL SULFATE [Suspect]
     Active Substance: ALBUTEROL SULFATE
     Indication: Asthma
     Route: 065
  210. ALBUTEROL SULFATE [Suspect]
     Active Substance: ALBUTEROL SULFATE
     Indication: Asthma
     Route: 065
  211. ALBUTEROL SULFATE [Suspect]
     Active Substance: ALBUTEROL SULFATE
     Indication: Asthma
     Route: 065
  212. ALBUTEROL SULFATE [Suspect]
     Active Substance: ALBUTEROL SULFATE
     Indication: Asthma
     Route: 065
  213. ALBUTEROL SULFATE [Suspect]
     Active Substance: ALBUTEROL SULFATE
     Indication: Asthma
     Route: 065
  214. ALBUTEROL SULFATE [Suspect]
     Active Substance: ALBUTEROL SULFATE
     Indication: Asthma
     Route: 065
  215. ALBUTEROL SULFATE [Suspect]
     Active Substance: ALBUTEROL SULFATE
     Indication: Asthma
     Route: 065
  216. SENNA [Suspect]
     Active Substance: SENNOSIDES
     Indication: Product used for unknown indication
     Route: 065
  217. SENNOSIDES [Suspect]
     Active Substance: SENNOSIDES
     Indication: Product used for unknown indication
     Route: 065
  218. SENOKOT [Suspect]
     Active Substance: SENNOSIDES
     Indication: Product used for unknown indication
     Route: 065
  219. HERBALS [Suspect]
     Active Substance: HERBALS
     Indication: Product used for unknown indication
     Route: 065
  220. SIMVASTATIN [Suspect]
     Active Substance: SIMVASTATIN
     Indication: Product used for unknown indication
     Route: 065
  221. SINGULAIR [Suspect]
     Active Substance: MONTELUKAST SODIUM
     Indication: Product used for unknown indication
     Route: 065
  222. SODIUM BICARBONATE [Suspect]
     Active Substance: SODIUM BICARBONATE
     Indication: Product used for unknown indication
     Route: 065
  223. SODIUM CITRATE [Suspect]
     Active Substance: SODIUM CITRATE
     Indication: Product used for unknown indication
     Route: 065
  224. SODIUM FERRIC GLUCONATE COMPLEX [Suspect]
     Active Substance: SODIUM FERRIC GLUCONATE COMPLEX
     Indication: Product used for unknown indication
     Route: 065
  225. SODIUM PHOSPHATE [Suspect]
     Active Substance: SODIUM PHOSPHATE
     Indication: Product used for unknown indication
     Route: 065
  226. SODIUM PICOSULFATE [Suspect]
     Active Substance: SODIUM PICOSULFATE
     Indication: Product used for unknown indication
     Route: 065
  227. SPIRIVA [Suspect]
     Active Substance: TIOTROPIUM BROMIDE MONOHYDRATE
     Indication: Product used for unknown indication
     Route: 065
  228. SYNTHROID [Suspect]
     Active Substance: LEVOTHYROXINE SODIUM
     Indication: Product used for unknown indication
     Route: 065
  229. TOCOPHEROL [Suspect]
     Active Substance: TOCOPHEROL
     Indication: Product used for unknown indication
     Route: 065
  230. TRAZODONE [Suspect]
     Active Substance: TRAZODONE HYDROCHLORIDE
     Indication: Product used for unknown indication
     Route: 065
  231. TRELEGY ELLIPTA [Suspect]
     Active Substance: FLUTICASONE FUROATE\UMECLIDINIUM BROMIDE\VILANTEROL TRIFENATATE
     Indication: Product used for unknown indication
     Route: 065
  232. TRESIBA [Suspect]
     Active Substance: INSULIN DEGLUDEC
     Indication: Product used for unknown indication
     Route: 065
  233. TRESIBA [Suspect]
     Active Substance: INSULIN DEGLUDEC
     Indication: Product used for unknown indication
     Route: 065
  234. UMECLIDINIUM BROMIDE [Suspect]
     Active Substance: UMECLIDINIUM BROMIDE
     Indication: Product used for unknown indication
     Route: 065
  235. UMECLIDINIUM BROMIDE [Suspect]
     Active Substance: UMECLIDINIUM BROMIDE
     Indication: Product used for unknown indication
     Route: 065
  236. VITAMIN B6 [Suspect]
     Active Substance: PYRIDOXINE HYDROCHLORIDE
     Indication: Product used for unknown indication
     Route: 065
  237. VITAMIN C [Suspect]
     Active Substance: ASCORBIC ACID
     Indication: Product used for unknown indication
     Route: 065
  238. VITAMIN D [Suspect]
     Active Substance: VITAMIN D NOS
     Indication: Product used for unknown indication
     Route: 065
  239. VITAMIN E [Suspect]
     Active Substance: .ALPHA.-TOCOPHEROL
     Indication: Product used for unknown indication
     Route: 065
  240. VITAMIN E [Suspect]
     Active Substance: .ALPHA.-TOCOPHEROL
     Indication: Product used for unknown indication
     Route: 065
  241. VITAMIN K1 [Suspect]
     Active Substance: PHYTONADIONE
     Indication: Product used for unknown indication
     Route: 065
  242. VITAMIN K1 [Suspect]
     Active Substance: PHYTONADIONE
     Indication: Product used for unknown indication
     Route: 065
  243. VITAMIN K1 [Suspect]
     Active Substance: PHYTONADIONE
     Indication: Product used for unknown indication
     Route: 065
  244. WARFARIN [Suspect]
     Active Substance: WARFARIN
     Indication: Product used for unknown indication
     Route: 065
  245. WARFARIN [Suspect]
     Active Substance: WARFARIN
     Indication: Product used for unknown indication
     Route: 065
  246. XANTOFYL PALMITATE [Suspect]
     Active Substance: XANTOFYL PALMITATE
     Indication: Product used for unknown indication
     Route: 065
  247. XANTOFYL PALMITATE [Suspect]
     Active Substance: XANTOFYL PALMITATE
     Indication: Product used for unknown indication
     Route: 065
  248. XOLAIR [Suspect]
     Active Substance: OMALIZUMAB
     Indication: Product used for unknown indication
     Route: 065
  249. XYLOMETAZOLINE [Suspect]
     Active Substance: XYLOMETAZOLINE
     Indication: Product used for unknown indication
     Route: 065
  250. XYLOMETAZOLINE [Suspect]
     Active Substance: XYLOMETAZOLINE
     Indication: Product used for unknown indication
     Route: 065
  251. ZOCOR [Suspect]
     Active Substance: SIMVASTATIN
     Indication: Product used for unknown indication
     Route: 065
  252. ZOPICLONE [Suspect]
     Active Substance: ZOPICLONE
     Indication: Product used for unknown indication
     Route: 065
  253. AMINOBENZOIC ACID [Suspect]
     Active Substance: AMINOBENZOIC ACID
     Indication: Product used for unknown indication
     Route: 065
  254. CALCIUM PANTOTHENATE [Suspect]
     Active Substance: CALCIUM PANTOTHENATE
     Indication: Product used for unknown indication
     Route: 065
  255. MEDIUM-CHAIN TRIGLYCERIDES [Suspect]
     Active Substance: MEDIUM-CHAIN TRIGLYCERIDES
     Indication: Product used for unknown indication
     Route: 065
  256. HERBALS [Suspect]
     Active Substance: HERBALS
     Indication: Product used for unknown indication
     Route: 065
  257. DISTIGMINE BROMIDE [Suspect]
     Active Substance: DISTIGMINE BROMIDE
     Indication: Product used for unknown indication
     Route: 065
  258. FENOTEROL [Suspect]
     Active Substance: FENOTEROL
     Indication: Product used for unknown indication
     Route: 065
  259. FERROUS SULFATE [Suspect]
     Active Substance: FERROUS SULFATE
     Indication: Product used for unknown indication
     Route: 065
  260. GLYCERYL MONOSTEARATE [Suspect]
     Active Substance: GLYCERYL MONOSTEARATE
     Indication: Product used for unknown indication
     Route: 065
  261. UNSPECIFIED INGREDIENT [Suspect]
     Active Substance: UNSPECIFIED INGREDIENT
     Indication: Product used for unknown indication
     Route: 065
  262. NOREPINEPHRINE BITARTRATE [Suspect]
     Active Substance: NOREPINEPHRINE BITARTRATE
     Indication: Product used for unknown indication
     Route: 065
  263. IPRATROPIUM [Suspect]
     Active Substance: IPRATROPIUM
     Indication: Product used for unknown indication
     Route: 065
  264. DEXTROSE\SODIUM CHLORIDE [Suspect]
     Active Substance: DEXTROSE\SODIUM CHLORIDE
     Indication: Product used for unknown indication
     Route: 065
  265. UNSPECIFIED INGREDIENT [Suspect]
     Active Substance: UNSPECIFIED INGREDIENT
     Indication: Product used for unknown indication
     Route: 065
  266. BUDESONIDE\FORMOTEROL FUMARATE [Suspect]
     Active Substance: BUDESONIDE\FORMOTEROL FUMARATE
     Indication: Product used for unknown indication
     Route: 065
  267. CALCIUM GLYCEROPHOSPHATE [Suspect]
     Active Substance: CALCIUM GLYCEROPHOSPHATE
     Indication: Product used for unknown indication
     Route: 065
  268. CARBOHYDRATES [Suspect]
     Active Substance: CARBOHYDRATES
     Indication: Product used for unknown indication
     Route: 065
  269. CEFTRIAXONE [Suspect]
     Active Substance: CEFTRIAXONE
     Indication: Product used for unknown indication
     Route: 065
  270. FLUTICASONE FUROATE\VILANTEROL TRIFENATATE [Suspect]
     Active Substance: FLUTICASONE FUROATE\VILANTEROL TRIFENATATE
     Indication: Product used for unknown indication
     Route: 065
  271. FLUTICASONE FUROATE\VILANTEROL TRIFENATATE [Suspect]
     Active Substance: FLUTICASONE FUROATE\VILANTEROL TRIFENATATE
     Indication: Product used for unknown indication
     Route: 065
  272. LEUCOVORIN [Suspect]
     Active Substance: LEUCOVORIN\LEUCOVORIN CALCIUM
     Indication: Product used for unknown indication
     Route: 065
  273. INSULIN PORK\INSULIN PURIFIED PORK [Suspect]
     Active Substance: INSULIN PORK\INSULIN PURIFIED PORK
     Indication: Product used for unknown indication
     Route: 065
  274. POTASSIUM CHLORIDE [Suspect]
     Active Substance: POTASSIUM CHLORIDE
     Indication: Product used for unknown indication
     Route: 065
  275. LANTHANUM CARBONATE [Suspect]
     Active Substance: LANTHANUM CARBONATE
     Indication: Product used for unknown indication
     Route: 065
  276. LANTHANUM CARBONATE [Suspect]
     Active Substance: LANTHANUM CARBONATE
     Indication: Product used for unknown indication
     Route: 065
  277. MAGNESIUM OXIDE [Suspect]
     Active Substance: MAGNESIUM OXIDE
     Indication: Product used for unknown indication
     Route: 065
  278. MOVIPREP [Suspect]
     Active Substance: ASCORBIC ACID\POLYETHYLENE GLYCOL 3350\POTASSIUM CHLORIDE\SODIUM ASCORBATE\SODIUM CHLORIDE\SODIUM SU
     Indication: Off label use
     Route: 048
  279. MOVIPREP [Suspect]
     Active Substance: ASCORBIC ACID\POLYETHYLENE GLYCOL 3350\POTASSIUM CHLORIDE\SODIUM ASCORBATE\SODIUM CHLORIDE\SODIUM SU
     Indication: Off label use
     Route: 042
  280. MOVIPREP [Suspect]
     Active Substance: ASCORBIC ACID\POLYETHYLENE GLYCOL 3350\POTASSIUM CHLORIDE\SODIUM ASCORBATE\SODIUM CHLORIDE\SODIUM SU
     Indication: Off label use
     Route: 042
  281. MOVIPREP [Suspect]
     Active Substance: ASCORBIC ACID\POLYETHYLENE GLYCOL 3350\POTASSIUM CHLORIDE\SODIUM ASCORBATE\SODIUM CHLORIDE\SODIUM SU
     Indication: Constipation
     Route: 048
  282. MOVIPREP [Suspect]
     Active Substance: ASCORBIC ACID\POLYETHYLENE GLYCOL 3350\POTASSIUM CHLORIDE\SODIUM ASCORBATE\SODIUM CHLORIDE\SODIUM SU
     Indication: Constipation
     Route: 042
  283. MOVIPREP [Suspect]
     Active Substance: ASCORBIC ACID\POLYETHYLENE GLYCOL 3350\POTASSIUM CHLORIDE\SODIUM ASCORBATE\SODIUM CHLORIDE\SODIUM SU
     Indication: Constipation
     Route: 042
  284. NOREPINEPHRINE BITARTRATE [Suspect]
     Active Substance: NOREPINEPHRINE BITARTRATE
     Indication: Product used for unknown indication
     Route: 065
  285. NOREPINEPHRINE BITARTRATE [Suspect]
     Active Substance: NOREPINEPHRINE BITARTRATE
     Indication: Product used for unknown indication
     Route: 065
  286. ASCORBIC ACID [Suspect]
     Active Substance: ASCORBIC ACID
     Indication: Product used for unknown indication
     Route: 065
  287. OSMITROL [Suspect]
     Active Substance: MANNITOL
     Indication: Product used for unknown indication
     Route: 065
  288. SEREVENT DISKUS [Suspect]
     Active Substance: SALMETEROL XINAFOATE
     Indication: Product used for unknown indication
     Route: 065
  289. SODIUM [Suspect]
     Active Substance: SODIUM
     Indication: Product used for unknown indication
     Route: 065
  290. VASOPRESSIN [Suspect]
     Active Substance: VASOPRESSIN
     Indication: Product used for unknown indication
     Route: 065
  291. CLIOQUINOL [Suspect]
     Active Substance: CLIOQUINOL
     Indication: Product used for unknown indication
     Route: 065
  292. DISTIGMINE BROMIDE [Suspect]
     Active Substance: DISTIGMINE BROMIDE
     Indication: Product used for unknown indication
     Route: 065
  293. VITAMINS [Suspect]
     Active Substance: VITAMINS
     Indication: Product used for unknown indication
     Route: 065
  294. UNSPECIFIED INGREDIENT [Suspect]
     Active Substance: UNSPECIFIED INGREDIENT
     Indication: Product used for unknown indication
     Route: 065
  295. MANNITOL [Suspect]
     Active Substance: MANNITOL
     Indication: Product used for unknown indication
     Route: 065

REACTIONS (72)
  - Congenital hiatus hernia [Fatal]
  - Activated partial thromboplastin time prolonged [Fatal]
  - Anaemia [Fatal]
  - Analgesic therapy [Fatal]
  - Antacid therapy [Fatal]
  - Anticoagulant therapy [Fatal]
  - Aspiration [Fatal]
  - Asthenia [Fatal]
  - Benign prostatic hyperplasia [Fatal]
  - Blood calcium increased [Fatal]
  - Blood creatinine increased [Fatal]
  - Blood test abnormal [Fatal]
  - Bronchopulmonary aspergillosis allergic [Fatal]
  - Cardiovascular disorder [Fatal]
  - Chronic obstructive pulmonary disease [Fatal]
  - Coronary artery disease [Fatal]
  - Diabetes mellitus [Fatal]
  - End stage renal disease [Fatal]
  - Full blood count abnormal [Fatal]
  - General physical health deterioration [Fatal]
  - Gout [Fatal]
  - Hyperlipidaemia [Fatal]
  - Hypercholesterolaemia [Fatal]
  - Hyperphosphataemia [Fatal]
  - Hypertension [Fatal]
  - Hyponatraemia [Fatal]
  - Hypophosphataemia [Fatal]
  - Joint injury [Fatal]
  - Liver disorder [Fatal]
  - Malignant melanoma stage 0 [Fatal]
  - Micturition urgency [Fatal]
  - Multiple organ dysfunction syndrome [Fatal]
  - Myasthenia gravis [Fatal]
  - Neuralgia [Fatal]
  - Oedema peripheral [Fatal]
  - Pain [Fatal]
  - Pleuritic pain [Fatal]
  - Pulmonary embolism [Fatal]
  - Respiratory symptom [Fatal]
  - Sepsis [Fatal]
  - Sleep disorder [Fatal]
  - Sleep disorder therapy [Fatal]
  - Somnolence [Fatal]
  - Stress [Fatal]
  - Swelling [Fatal]
  - Thrombosis [Fatal]
  - Transaminases increased [Fatal]
  - Transient ischaemic attack [Fatal]
  - Tremor [Fatal]
  - Troponin increased [Fatal]
  - Ulcer [Fatal]
  - Upper respiratory tract infection [Fatal]
  - Lower respiratory tract infection [Fatal]
  - Drug hypersensitivity [Fatal]
  - Condition aggravated [Fatal]
  - Drug therapy [Fatal]
  - Incorrect route of product administration [Fatal]
  - Intentional product misuse [Fatal]
  - Off label use [Fatal]
  - Product dose omission issue [Fatal]
  - Product use in unapproved indication [Fatal]
  - Bacterial infection [Fatal]
  - Lung disorder [Fatal]
  - Musculoskeletal stiffness [Fatal]
  - Fatigue [Fatal]
  - Asthma [Fatal]
  - Pyrexia [Fatal]
  - Gastrointestinal disorder [Fatal]
  - Headache [Fatal]
  - Breath sounds abnormal [Fatal]
  - Drug ineffective [Fatal]
  - Drug intolerance [Fatal]
